FAERS Safety Report 19768408 (Version 1)
Quarter: 2021Q3

REPORT INFORMATION
  Report Type: Report from Study
  Country: AR (occurrence: AR)
  Receive Date: 20210830
  Receipt Date: 20210830
  Transmission Date: 20211014
  Serious: Yes (Death, Other)
  Sender: FDA-Public Use
  Company Number: AR-GILEAD-2021-0534486

PATIENT
  Age: 64 Year
  Sex: Male

DRUGS (24)
  1. HEPARIN [Concomitant]
     Active Substance: HEPARIN SODIUM
  2. PIPERACILLIN SODIUM;TAZOBACTAM SODIUM [Concomitant]
     Active Substance: PIPERACILLIN SODIUM\TAZOBACTAM SODIUM
  3. CILASTATIN SODIUM;IMIPENEM [Concomitant]
     Active Substance: CILASTATIN SODIUM\IMIPENEM
  4. AMPICILLIN;SULBACTAM [Concomitant]
     Active Substance: AMPICILLIN SODIUM\SULBACTAM SODIUM
  5. RANITIDINE. [Concomitant]
     Active Substance: RANITIDINE
  6. VASOPRESSIN. [Concomitant]
     Active Substance: VASOPRESSIN
  7. CLONAZEPAM. [Concomitant]
     Active Substance: CLONAZEPAM
  8. LACTULOSE. [Concomitant]
     Active Substance: LACTULOSE
  9. REMIFENTANIL [Concomitant]
     Active Substance: REMIFENTANIL
  10. VANCOMYCIN [Concomitant]
     Active Substance: VANCOMYCIN
  11. BLINDED INFLIXIMAB [Suspect]
     Active Substance: INFLIXIMAB
     Indication: COVID-19
     Dosage: UNK UNK, ONCE
     Route: 042
     Dates: start: 20210513
  12. FENTANYL. [Concomitant]
     Active Substance: FENTANYL
  13. HYDROCORTISONE. [Concomitant]
     Active Substance: HYDROCORTISONE
  14. SODIUM CHLORIDE. [Concomitant]
     Active Substance: SODIUM CHLORIDE
  15. CLOSTIN [Concomitant]
  16. REMDESIVIR. [Suspect]
     Active Substance: REMDESIVIR
     Indication: COVID-19
     Dosage: UNK, QD
     Route: 042
     Dates: start: 20210513
  17. DEXAMETHASONE. [Concomitant]
     Active Substance: DEXAMETHASONE
  18. NOREPINEPHRINE BITARTRATE. [Concomitant]
     Active Substance: NOREPINEPHRINE BITARTRATE
  19. NYSTATIN. [Concomitant]
     Active Substance: NYSTATIN
  20. PLACEBO [Suspect]
     Active Substance: UNSPECIFIED INGREDIENT
     Indication: COVID-19
     Dosage: UNK UNK, ONCE
     Route: 042
     Dates: start: 20210513
  21. CLARITHROMYCIN. [Concomitant]
     Active Substance: CLARITHROMYCIN
  22. FUROSEMIDE. [Concomitant]
     Active Substance: FUROSEMIDE
  23. PANCURONIUM [Concomitant]
     Active Substance: PANCURONIUM
  24. MIDAZOLAM. [Concomitant]
     Active Substance: MIDAZOLAM

REACTIONS (2)
  - Pneumonia [Fatal]
  - Septic shock [Fatal]

NARRATIVE: CASE EVENT DATE: 20210528
